FAERS Safety Report 19512400 (Version 2)
Quarter: 2022Q1

REPORT INFORMATION
  Report Type: Spontaneous
  Country: US (occurrence: US)
  Receive Date: 20210709
  Receipt Date: 20220104
  Transmission Date: 20220423
  Serious: Yes (Hospitalization, Other)
  Sender: FDA-Public Use
  Company Number: US-AMGEN INC.-USASP2021102665

PATIENT
  Age: 61 Year
  Sex: Female

DRUGS (5)
  1. AIMOVIG [Suspect]
     Active Substance: ERENUMAB-AOOE
     Indication: Migraine prophylaxis
     Dosage: 70 MILLIGRAM, QMO
     Route: 065
  2. AIMOVIG [Suspect]
     Active Substance: ERENUMAB-AOOE
     Dosage: 70 MILLIGRAM, QMO
     Route: 065
  3. METHYLCOBALAMIN [Concomitant]
     Active Substance: METHYLCOBALAMIN
  4. TOPAMAX [Concomitant]
     Active Substance: TOPIRAMATE
     Indication: Loss of consciousness
  5. ASPIRIN [Concomitant]
     Active Substance: ASPIRIN

REACTIONS (9)
  - Loss of consciousness [Unknown]
  - Therapeutic response shortened [Unknown]
  - Wrong technique in product usage process [Unknown]
  - Device difficult to use [Unknown]
  - Skin discolouration [Unknown]
  - Headache [Unknown]
  - Drug dose omission by device [Unknown]
  - Injection site indentation [Unknown]
  - Injection site pain [Unknown]

NARRATIVE: CASE EVENT DATE: 20210501
